FAERS Safety Report 15757160 (Version 1)
Quarter: 2018Q4

REPORT INFORMATION
  Report Type: Spontaneous
  Country: US (occurrence: US)
  Receive Date: 20181224
  Receipt Date: 20181224
  Transmission Date: 20190205
  Serious: Yes (Hospitalization, Other)
  Sender: FDA-Public Use
  Company Number: US-009507513-1812USA009950

PATIENT
  Age: 23 Month
  Sex: Female

DRUGS (1)
  1. TEMODAR [Suspect]
     Active Substance: TEMOZOLOMIDE
     Route: 064

REACTIONS (3)
  - Exposure via father [Recovered/Resolved]
  - Aplastic anaemia [Unknown]
  - Foetal exposure during pregnancy [Recovered/Resolved]
